FAERS Safety Report 6165293 (Version 3)
Quarter: 2012Q4

REPORT INFORMATION
  Report Type: Report from Study
  Country: NL (occurrence: NL)
  Receive Date: 20061110
  Receipt Date: 20120918
  Transmission Date: 20130627
  Serious: Yes (Other)
  Sender: FDA-Public Use
  Company Number: NL-JNJFOC-20061101620

PATIENT
  Age: 0 Year
  Sex: Male
  Weight: 3.06 kg

DRUGS (3)
  1. INFLIXIMAB [Suspect]
     Indication: FOETAL EXPOSURE DURING PREGNANCY
     Route: 042
     Dates: start: 20040720, end: 20060720
  2. INFLIXIMAB [Suspect]
     Indication: FOETAL EXPOSURE DURING PREGNANCY
     Route: 042
     Dates: start: 20040831, end: 20040831
  3. INFLIXIMAB [Suspect]
     Indication: FOETAL EXPOSURE DURING PREGNANCY
     Route: 042
     Dates: start: 20040124, end: 20040124

REACTIONS (1)
  - Premature baby [Unknown]
